FAERS Safety Report 13721774 (Version 2)
Quarter: 2017Q3

REPORT INFORMATION
  Report Type: Spontaneous
  Country: GB (occurrence: GB)
  Receive Date: 20170706
  Receipt Date: 20170906
  Transmission Date: 20171127
  Serious: Yes (Life-Threatening, Hospitalization, Other)
  Sender: FDA-Public Use
  Company Number: GB-ELI_LILLY_AND_COMPANY-GB201707001245

PATIENT
  Age: 15 Year
  Sex: Female
  Weight: 33 kg

DRUGS (7)
  1. IBUPROFEN. [Concomitant]
     Active Substance: IBUPROFEN
     Indication: PRODUCT USED FOR UNKNOWN INDICATION
     Dosage: UNK, UNKNOWN
     Route: 065
  2. OESTRADIOL                         /00045401/ [Concomitant]
     Indication: PRODUCT USED FOR UNKNOWN INDICATION
     Dosage: UNK, UNKNOWN
     Route: 065
  3. PARACETAMOL [Concomitant]
     Active Substance: ACETAMINOPHEN
     Indication: PRODUCT USED FOR UNKNOWN INDICATION
     Dosage: UNK, UNKNOWN
     Route: 065
  4. SOMATROPIN. [Suspect]
     Active Substance: SOMATROPIN
     Indication: TURNER^S SYNDROME
     Dosage: 1.2 MG, INCREASED EVERY 2-4 MONTHS
     Route: 058
     Dates: start: 20160217
  5. EVOREL [Concomitant]
     Indication: PRIMARY HYPOGONADISM
     Dosage: 6.25 UG, DAILY
     Route: 062
     Dates: start: 20170208
  6. SOMATROPIN. [Suspect]
     Active Substance: SOMATROPIN
     Indication: BODY HEIGHT BELOW NORMAL
     Dosage: 1.7 MG, DAILY
     Route: 058
     Dates: end: 20170613
  7. CODEINE [Concomitant]
     Active Substance: CODEINE
     Indication: PRODUCT USED FOR UNKNOWN INDICATION
     Dosage: UNK

REACTIONS (10)
  - Vertebral column mass [Unknown]
  - Spinal cord compression [Unknown]
  - Lymphadenopathy [Unknown]
  - Pleural disorder [Unknown]
  - Gait disturbance [Unknown]
  - Alveolar rhabdomyosarcoma [Unknown]
  - Bone marrow infiltration [Unknown]
  - Pain in extremity [Unknown]
  - Limb mass [Unknown]
  - Urinary retention [Unknown]

NARRATIVE: CASE EVENT DATE: 201702
